FAERS Safety Report 8368090-1 (Version None)
Quarter: 2012Q2

REPORT INFORMATION
  Report Type: 
  Country: None (occurrence: None)
  Receive Date: 20120516
  Receipt Date: 20120504
  Transmission Date: 20120825
  Serious: Yes (Other)
  Sender: FDA-Public Use
  Company Number: AUR-APL-2012-01476

PATIENT
  Age: 75 Year
  Sex: Male

DRUGS (3)
  1. OLANZAPINE [Suspect]
     Indication: DEMENTIA
  2. MEDROXYPROGESTERONE [Concomitant]
  3. CITALOPRAM HYDROBROMIDE [Suspect]
     Indication: DEMENTIA
     Dosage: (10 MG)

REACTIONS (4)
  - DRUG INEFFECTIVE [None]
  - SEDATION [None]
  - SEXUALLY INAPPROPRIATE BEHAVIOUR [None]
  - CONDITION AGGRAVATED [None]
